FAERS Safety Report 23305263 (Version 1)
Quarter: 2023Q4

REPORT INFORMATION
  Report Type: Spontaneous
  Country: US (occurrence: US)
  Receive Date: 20231218
  Receipt Date: 20231218
  Transmission Date: 20240110
  Serious: Yes (Hospitalization)
  Sender: FDA-Public Use
  Company Number: US-ELI_LILLY_AND_COMPANY-US202312004306

PATIENT
  Sex: Female

DRUGS (2)
  1. FORTEO [Suspect]
     Active Substance: TERIPARATIDE
     Indication: Product used for unknown indication
     Dosage: UNK UNK, UNKNOWN
     Route: 065
     Dates: start: 202208
  2. FORTEO [Suspect]
     Active Substance: TERIPARATIDE
     Dosage: UNK UNK, UNKNOWN
     Route: 065
     Dates: start: 202208

REACTIONS (6)
  - Headache [Recovering/Resolving]
  - Pain [Recovering/Resolving]
  - Haemoglobin decreased [Recovering/Resolving]
  - Haematoma [Recovering/Resolving]
  - Injection site discolouration [Unknown]
  - Muscle spasms [Unknown]
